FAERS Safety Report 12993035 (Version 2)
Quarter: 2016Q4

REPORT INFORMATION
  Report Type: Spontaneous
  Country: LB (occurrence: LB)
  Receive Date: 20161202
  Receipt Date: 20161205
  Transmission Date: 20170207
  Serious: Yes (Life-Threatening, Other)
  Sender: FDA-Public Use
  Company Number: US-ASTRAZENECA-2016SF27770

PATIENT
  Age: 80 Year
  Sex: Male

DRUGS (4)
  1. DAXAS [Suspect]
     Active Substance: ROFLUMILAST
     Indication: CHRONIC OBSTRUCTIVE PULMONARY DISEASE
     Route: 048
  2. PLAVIX [Concomitant]
     Active Substance: CLOPIDOGREL BISULFATE
     Dosage: UNKNOWN, EVERY DAY
     Route: 048
  3. VASTAREL [Concomitant]
     Active Substance: TRIMETAZIDINE DIHYDROCHLORIDE
     Dosage: UNKNOWN, EVERY DAY
     Route: 048
  4. PROSCAR [Concomitant]
     Active Substance: FINASTERIDE
     Dosage: UNKNOWN, EVERY DAY
     Route: 048

REACTIONS (7)
  - Chronic obstructive pulmonary disease [Recovered/Resolved with Sequelae]
  - Suicidal behaviour [Recovered/Resolved with Sequelae]
  - Pain [Recovered/Resolved with Sequelae]
  - Decreased appetite [Recovered/Resolved with Sequelae]
  - Nightmare [Recovered/Resolved with Sequelae]
  - Anxiety [Recovered/Resolved with Sequelae]
  - Fatigue [Recovered/Resolved with Sequelae]
